FAERS Safety Report 8119292-0 (Version None)
Quarter: 2012Q1

REPORT INFORMATION
  Report Type: 
  Country: None (occurrence: None)
  Receive Date: 20120207
  Receipt Date: 20120127
  Transmission Date: 20120608
  Serious: Yes (Other)
  Sender: FDA-Public Use
  Company Number: US-ELI_LILLY_AND_COMPANY-US201201009031

PATIENT
  Sex: Male

DRUGS (2)
  1. ZYPREXA RELPREVV [Suspect]
     Dosage: UNK
     Dates: start: 20110101, end: 20110101
  2. ZYPREXA [Suspect]

REACTIONS (2)
  - INTENTIONAL DRUG MISUSE [None]
  - AGGRESSION [None]
